FAERS Safety Report 11287464 (Version 2)
Quarter: 2015Q3

REPORT INFORMATION
  Report Type: Report from Study
  Country: MX (occurrence: MX)
  Receive Date: 20150721
  Receipt Date: 20150730
  Transmission Date: 20151125
  Serious: Yes (Other)
  Sender: FDA-Public Use
  Company Number: PHHY2013MX139162

PATIENT
  Sex: Female

DRUGS (4)
  1. TRILEPTAL [Suspect]
     Active Substance: OXCARBAZEPINE
     Indication: PAIN IN EXTREMITY
     Dosage: 0.25 DF (1/4 TABLET) (300 MG), QD
     Route: 065
  2. MYSEN [Concomitant]
     Indication: PRODUCT USED FOR UNKNOWN INDICATION
     Dosage: 2 DF, QD
     Route: 065
     Dates: start: 201307, end: 201308
  3. COZAAR [Concomitant]
     Active Substance: LOSARTAN POTASSIUM
     Indication: HYPERTENSION
     Dosage: 0.5 DF, QD (50 MG)
     Route: 065
     Dates: start: 2001
  4. TRILEPTAL [Suspect]
     Active Substance: OXCARBAZEPINE
     Indication: SPINAL PAIN
     Dosage: 0.5 DF, (300 MG) QD
     Route: 048
     Dates: start: 20130712, end: 20130712

REACTIONS (6)
  - Neuropathy peripheral [Unknown]
  - Hypoaesthesia [Unknown]
  - Intervertebral disc protrusion [Not Recovered/Not Resolved]
  - Pain [Not Recovered/Not Resolved]
  - Off label use [Not Recovered/Not Resolved]
  - Muscle spasms [Unknown]
